FAERS Safety Report 5410447-2 (Version None)
Quarter: 2007Q3

REPORT INFORMATION
  Report Type: 
  Country: None (occurrence: None)
  Receive Date: 20070810
  Receipt Date: 20061214
  Transmission Date: 20080115
  Serious: No
  Sender: FDA-Public Use
  Company Number: A0631602A

PATIENT
  Age: 35 Year
  Sex: Female

DRUGS (7)
  1. PAXIL [Suspect]
     Indication: DEPRESSION
     Dosage: 50MG PER DAY
     Route: 048
  2. VALTREX [Concomitant]
  3. ACIPHEX [Concomitant]
  4. SINGULAIR [Concomitant]
  5. UNKNOWN MEDICATION [Concomitant]
  6. CLARITIN [Concomitant]
  7. ALBUTEROL [Concomitant]

REACTIONS (1)
  - DRUG EXPOSURE DURING PREGNANCY [None]
